FAERS Safety Report 10221220 (Version 1)
Quarter: 2014Q2

REPORT INFORMATION
  Report Type: Spontaneous
  Country: US (occurrence: US)
  Receive Date: 20140606
  Receipt Date: 20140606
  Transmission Date: 20141212
  Serious: No
  Sender: FDA-Public Use
  Company Number: US-GLAXOSMITHKLINE-A1065234A

PATIENT
  Age: 67 Year
  Sex: Female
  Weight: 109.1 kg

DRUGS (2)
  1. BREO ELLIPTA [Suspect]
     Indication: PRODUCT USED FOR UNKNOWN INDICATION
     Dosage: 1PUFF PER DAY
     Route: 055
     Dates: start: 20140122, end: 20140130
  2. ADVAIR [Concomitant]
     Indication: PRODUCT USED FOR UNKNOWN INDICATION
     Route: 065

REACTIONS (2)
  - Candida infection [Recovered/Resolved]
  - Oral candidiasis [Recovered/Resolved]
